FAERS Safety Report 9008383 (Version 4)
Quarter: 2013Q3

REPORT INFORMATION
  Report Type: Spontaneous
  Country: IE (occurrence: IE)
  Receive Date: 20130111
  Receipt Date: 20130930
  Transmission Date: 20140515
  Serious: Yes (Hospitalization)
  Sender: FDA-Public Use
  Company Number: PHFR2013IE000523

PATIENT
  Age: 31 Year
  Sex: Male

DRUGS (4)
  1. CLOZARIL [Suspect]
     Indication: SCHIZOPHRENIA
     Dosage: UKN
     Route: 048
     Dates: start: 20120727
  2. CLOZARIL [Suspect]
     Indication: BIPOLAR DISORDER
     Dosage: 500 MG
     Route: 048
     Dates: start: 20121214
  3. CLOZARIL [Suspect]
     Dosage: UNK
  4. SODIUM VALPROATE [Concomitant]
     Dosage: UNK

REACTIONS (9)
  - Colitis [Recovered/Resolved]
  - Gastrointestinal disorder [Unknown]
  - White blood cell count increased [Unknown]
  - Diarrhoea [Unknown]
  - Hypotension [Unknown]
  - Dehydration [Unknown]
  - Renal failure acute [Recovered/Resolved]
  - Blood creatinine increased [Unknown]
  - Blood urea increased [Unknown]
